FAERS Safety Report 18565400 (Version 1)
Quarter: 2020Q4

REPORT INFORMATION
  Report Type: Spontaneous
  Country: JP (occurrence: JP)
  Receive Date: 20201201
  Receipt Date: 20201201
  Transmission Date: 20210114
  Serious: Yes (Other)
  Sender: FDA-Public Use
  Company Number: JP-009507513-2011JPN010577

PATIENT
  Age: 60 Year
  Sex: Female

DRUGS (1)
  1. REFLEX [Suspect]
     Active Substance: MIRTAZAPINE
     Indication: DEPRESSION
     Dosage: UNK
     Route: 048

REACTIONS (5)
  - Thirst [Recovering/Resolving]
  - Delusion [Not Recovered/Not Resolved]
  - Neuroleptic malignant syndrome [Unknown]
  - Depressive symptom [Not Recovered/Not Resolved]
  - Stupor [Recovered/Resolved]
